FAERS Safety Report 17266494 (Version 1)
Quarter: 2020Q1

REPORT INFORMATION
  Report Type: Spontaneous
  Country: CA (occurrence: CA)
  Receive Date: 20200114
  Receipt Date: 20200114
  Transmission Date: 20200409
  Serious: Yes (Hospitalization)
  Sender: FDA-Public Use
  Company Number: CA-TEVA-2020-CA-1165543

PATIENT
  Age: 36 Year
  Sex: Male

DRUGS (8)
  1. INFLECTRA (PFIZER) [Concomitant]
     Route: 042
     Dates: start: 20191126, end: 20191126
  2. INFLECTRA (PFIZER) [Concomitant]
     Route: 042
     Dates: start: 20191119, end: 20191119
  3. SOLU-MEDROL (PFIZER) [Concomitant]
     Route: 042
     Dates: start: 20191107, end: 20191118
  4. INFLECTRA (PFIZER) [Concomitant]
     Indication: COLITIS ULCERATIVE
     Route: 042
     Dates: start: 20191206, end: 20191206
  5. AZATHIOPRINE. [Suspect]
     Active Substance: AZATHIOPRINE
     Dosage: ONGOING
     Route: 065
     Dates: start: 20191201
  6. PREDNISONE. [Suspect]
     Active Substance: PREDNISONE
     Dosage: ONGOING
     Route: 048
     Dates: start: 20191118
  7. PREDNISONE. [Suspect]
     Active Substance: PREDNISONE
     Dates: start: 2018
  8. INFLECTRA (PFIZER) [Concomitant]
     Route: 042
     Dates: start: 20191122, end: 20191122

REACTIONS (5)
  - Drug intolerance [Unknown]
  - Condition aggravated [Unknown]
  - Abdominal pain [Unknown]
  - Drug ineffective [Unknown]
  - Vomiting [Unknown]

NARRATIVE: CASE EVENT DATE: 201911
